FAERS Safety Report 6759516-5 (Version None)
Quarter: 2010Q2

REPORT INFORMATION
  Report Type: 
  Country: None (occurrence: None)
  Receive Date: 20100603
  Receipt Date: 20100520
  Transmission Date: 20101027
  Serious: Yes (Hospitalization)
  Sender: FDA-Public Use
  Company Number: LEO-2010-00435

PATIENT
  Age: 82 Year
  Sex: Female

DRUGS (4)
  1. INNOHEP [Suspect]
     Indication: DRUG USE FOR UNKNOWN INDICATION
     Dosage: 12000 IU, SUBCUTANEOUS
     Route: 058
  2. LOVENOX [Suspect]
     Indication: PULMONARY EMBOLISM
     Dosage: 1 DF (1 DOSAGE FORMS), SUBCUTANEOUS
     Dates: start: 20100414, end: 20100414
  3. METHOTREXATE [Suspect]
     Indication: RHEUMATOID ARTHRITIS
     Dosage: 0.1429 DOSAGE FORMS, SUBCUTANEOUS, 2.1429 (15 MG, 1 IN 1 WK) 2.8571 MG (20 MG, 1 IN 1 WK)
     Route: 058
     Dates: start: 20100331, end: 20100415
  4. METHOTREXATE [Suspect]
     Indication: RHEUMATOID ARTHRITIS
     Dosage: 0.1429 DOSAGE FORMS, SUBCUTANEOUS, 2.1429 (15 MG, 1 IN 1 WK) 2.8571 MG (20 MG, 1 IN 1 WK)
     Route: 058
     Dates: start: 20100330

REACTIONS (2)
  - NEUTROPENIA [None]
  - THROMBOCYTOPENIA [None]
